FAERS Safety Report 7019612-4 (Version None)
Quarter: 2010Q3

REPORT INFORMATION
  Report Type: 
  Country: None (occurrence: None)
  Receive Date: 20100928
  Receipt Date: 20100928
  Transmission Date: 20110219
  Serious: No
  Sender: FDA-Public Use
  Company Number: None

PATIENT
  Age: 84 Year
  Sex: Male
  Weight: 59 kg

DRUGS (1)
  1. BUPIVACAINE/DEXTROSE [Suspect]
     Indication: SURGERY
     Dosage: ONCE OTHER
     Dates: start: 20100427, end: 20100427

REACTIONS (1)
  - PROCEDURAL COMPLICATION [None]
